FAERS Safety Report 5416694-8 (Version None)
Quarter: 2007Q3

REPORT INFORMATION
  Report Type: 
  Country: None (occurrence: None)
  Receive Date: 20070816
  Receipt Date: 20070808
  Transmission Date: 20080115
  Serious: Yes (Other)
  Sender: FDA-Public Use
  Company Number: US-AMGEN-STX234647

PATIENT
  Sex: Female
  Weight: 83.5 kg

DRUGS (10)
  1. ENBREL [Suspect]
     Indication: RHEUMATOID ARTHRITIS
     Route: 058
     Dates: start: 20030207
  2. ENBREL [Suspect]
  3. PLAQUENIL [Concomitant]
     Route: 048
     Dates: start: 20030101
  4. METHOTREXATE [Concomitant]
     Route: 048
     Dates: start: 20020101
  5. LEUCOVORIN CALCIUM [Concomitant]
     Dates: start: 20020101
  6. PREDNISONE TAB [Concomitant]
  7. ACTONEL [Concomitant]
     Dates: start: 20070301
  8. ORPHENADRINE CITRATE [Concomitant]
  9. IRON [Concomitant]
  10. ASPIRIN [Concomitant]

REACTIONS (2)
  - HYPOCHROMIC ANAEMIA [None]
  - THROMBOCYTHAEMIA [None]
